FAERS Safety Report 7545719-9 (Version None)
Quarter: 2011Q2

REPORT INFORMATION
  Report Type: 
  Country: None (occurrence: None)
  Receive Date: 20110614
  Receipt Date: 20110607
  Transmission Date: 20111010
  Serious: Yes (Hospitalization)
  Sender: FDA-Public Use
  Company Number: US-AMGEN-USASP2011023629

PATIENT
  Age: 81 Year
  Sex: Female

DRUGS (4)
  1. REMICADE [Concomitant]
  2. PROLIA [Suspect]
     Indication: OSTEOPOROSIS POSTMENOPAUSAL
     Dosage: 60 MG, Q6MO
     Route: 030
     Dates: start: 20110223
  3. CALCIUM CARBONATE [Concomitant]
  4. VITAMIN A [Concomitant]

REACTIONS (2)
  - HYPOCALCAEMIA [None]
  - HYPERKALAEMIA [None]
